FAERS Safety Report 6025018-7 (Version None)
Quarter: 2008Q4

REPORT INFORMATION
  Report Type: 
  Country: None (occurrence: None)
  Receive Date: 20081231
  Receipt Date: 20081216
  Transmission Date: 20090506
  Serious: Yes (Other)
  Sender: FDA-Public Use
  Company Number: FR-PFIZER INC-2008097059

PATIENT

DRUGS (2)
  1. CHAMPIX [Suspect]
     Indication: SMOKING CESSATION THERAPY
     Dosage: 1 MG, 2X/DAY
     Dates: start: 20081031
  2. DRUG, UNSPECIFIED [Concomitant]

REACTIONS (5)
  - DYSPNOEA [None]
  - ILL-DEFINED DISORDER [None]
  - MUSCLE CONTRACTURE [None]
  - MUSCLE SPASMS [None]
  - TREMOR [None]
